FAERS Safety Report 9720473 (Version 2)
Quarter: 2014Q1

REPORT INFORMATION
  Report Type: Spontaneous
  Country: NL (occurrence: NL)
  Receive Date: 20131129
  Receipt Date: 20140110
  Transmission Date: 20141002
  Serious: Yes (Other)
  Sender: FDA-Public Use
  Company Number: NL-JNJFOC-20131115015

PATIENT
  Sex: Female

DRUGS (6)
  1. REMICADE [Suspect]
     Indication: CROHN^S DISEASE
     Route: 042
     Dates: start: 20130426, end: 20131220
  2. PREDNISONE [Concomitant]
     Indication: ECZEMA
     Route: 048
  3. PREDNISONE [Concomitant]
     Indication: PSORIASIS
     Route: 048
  4. ANTIBIOTICS NOS [Concomitant]
     Route: 065
  5. BETAMETHASONE [Concomitant]
     Route: 061
  6. VASELINE [Concomitant]
     Route: 061

REACTIONS (2)
  - Nail disorder [Recovering/Resolving]
  - Eczema [Recovering/Resolving]
